FAERS Safety Report 8690894 (Version 2)
Quarter: 2013Q1

REPORT INFORMATION
  Report Type: Spontaneous
  Country: BR (occurrence: BR)
  Receive Date: 20120730
  Receipt Date: 20130212
  Transmission Date: 20140127
  Serious: Yes (Other)
  Sender: FDA-Public Use
  Company Number: BR-AMGEN-BRASP2012046682

PATIENT
  Age: 71 Year
  Sex: Female
  Weight: 73 kg

DRUGS (6)
  1. ENBREL [Suspect]
     Indication: RHEUMATOID ARTHRITIS
     Dosage: 50 MG, ONCE WEEKLY
     Route: 058
     Dates: start: 20111207, end: 201205
  2. ENBREL [Suspect]
     Dosage: 50 MG, ONCE WEEKLY
     Route: 058
     Dates: start: 201112, end: 201207
  3. KEFLEX                             /00145502/ [Concomitant]
     Dosage: UNK
  4. XARELTO [Concomitant]
     Dosage: UNK
  5. DICLOFENAC SODIUM [Concomitant]
     Dosage: UNK
  6. ARAVA [Concomitant]
     Dosage: UNK

REACTIONS (4)
  - Ankle fracture [Unknown]
  - Joint injury [Unknown]
  - Accident [Unknown]
  - Blood pressure fluctuation [Not Recovered/Not Resolved]
